FAERS Safety Report 6774081-4 (Version None)
Quarter: 2010Q2

REPORT INFORMATION
  Report Type: 
  Country: None (occurrence: None)
  Receive Date: 20100616
  Receipt Date: 20100616
  Transmission Date: 20101027
  Serious: Yes (Death)
  Sender: FDA-Public Use
  Company Number: None

PATIENT
  Age: 67 Year
  Sex: Male
  Weight: 61.2356 kg

DRUGS (3)
  1. AMIODARONE HCL [Suspect]
     Indication: ATRIAL FIBRILLATION
     Dosage: DAILY IV
     Route: 042
     Dates: start: 20100108, end: 20100201
  2. ADVAIR DISKUS 100/50 [Concomitant]
  3. LEVAQUIN [Concomitant]

REACTIONS (9)
  - ABDOMINAL DISTENSION [None]
  - DRUG TOXICITY [None]
  - DYSPEPSIA [None]
  - EYE DISORDER [None]
  - EYE HAEMORRHAGE [None]
  - HEART RATE INCREASED [None]
  - HYPOTENSION [None]
  - INJURY [None]
  - LUNG DISORDER [None]
